FAERS Safety Report 8413386-8 (Version None)
Quarter: 2012Q2

REPORT INFORMATION
  Report Type: 
  Country: None (occurrence: None)
  Receive Date: 20120605
  Receipt Date: 20120531
  Transmission Date: 20120825
  Serious: Yes (Hospitalization)
  Sender: FDA-Public Use
  Company Number: PHHY2012GB046509

PATIENT
  Age: 74 Year
  Sex: Male

DRUGS (7)
  1. SUTENT [Suspect]
     Indication: TRANSITIONAL CELL CARCINOMA
     Dosage: 25 MG/DAY
     Dates: start: 20120404
  2. GEMCITABINE [Concomitant]
     Dosage: 2000 MG/DAY
     Route: 042
     Dates: start: 20120404, end: 20120404
  3. NITROFURANTOIN [Concomitant]
     Dosage: 100 MG/DAY
     Dates: start: 20120401, end: 20120408
  4. CIPROFLOXACIN [Concomitant]
     Dosage: 50 MG/DAY
     Route: 048
     Dates: start: 20120330, end: 20120406
  5. AMIODARONE HCL [Suspect]
     Dosage: 100 MG/DAY
     Route: 048
     Dates: start: 19920305
  6. CISPLATIN [Suspect]
     Dosage: 140 MG/DAY
     Route: 042
     Dates: start: 20120404
  7. TAMSULOSIN HCL [Suspect]
     Dosage: 400 MG/DAY
     Route: 048
     Dates: start: 20110404, end: 20120423

REACTIONS (5)
  - HAEMATURIA [None]
  - BLOOD SODIUM DECREASED [None]
  - MALAISE [None]
  - DIZZINESS [None]
  - ORTHOSTATIC HYPOTENSION [None]
